FAERS Safety Report 8925898 (Version 1)
Quarter: 2012Q4

REPORT INFORMATION
  Report Type: 
  Country: US (occurrence: US)
  Receive Date: 20121126
  Receipt Date: 20121126
  Transmission Date: 20130627
  Serious: Yes (Other)
  Sender: FDA-Public Use
  Company Number: PHEH2012US022789

PATIENT
  Sex: Female

DRUGS (5)
  1. ZOMETA [Suspect]
     Dosage: UNK UKN, UNK
     Dates: start: 2012
  2. REVLIMID [Suspect]
     Indication: MULTIPLE MYELOMA
     Dosage: 5 mg, UNK
     Route: 048
     Dates: start: 20120614
  3. DEXAMETHASONE [Concomitant]
     Dosage: UNK UKN, UNK
  4. VELCADE [Concomitant]
     Dosage: UNK UKN, UNK
  5. CIPRO [Concomitant]
     Dosage: UNK UKN, UNK

REACTIONS (3)
  - Osteonecrosis of jaw [Unknown]
  - Tooth disorder [Unknown]
  - Localised infection [Unknown]
